FAERS Safety Report 11093741 (Version 10)
Quarter: 2020Q2

REPORT INFORMATION
  Report Type: Report from Study
  Country: JP (occurrence: JP)
  Receive Date: 20150506
  Receipt Date: 20200528
  Transmission Date: 20200713
  Serious: Yes (Death, Hospitalization)
  Sender: FDA-Public Use
  Company Number: JP-PFIZER INC-2015096199

PATIENT
  Age: 73 Year
  Sex: Female
  Weight: 55 kg

DRUGS (14)
  1. MYSER [Concomitant]
     Indication: SKIN FISSURES
     Dosage: 2X/DAY
     Route: 003
     Dates: start: 20150213
  2. ATORVASTATIN [Concomitant]
     Active Substance: ATORVASTATIN
     Indication: HYPERLIPIDAEMIA
     Dosage: 1X/DAY
     Route: 048
  3. ULCERLMIN [Concomitant]
     Active Substance: SUCRALFATE
     Indication: PROPHYLAXIS AGAINST GASTROINTESTINAL ULCER
     Dosage: 3X/DAY
     Route: 048
  4. CALFINA [Concomitant]
     Active Substance: ALFACALCIDOL
     Indication: OSTEOPOROSIS
     Dosage: 1X/DAY
     Route: 048
     Dates: start: 201110
  5. SP TROCHE [Concomitant]
     Active Substance: DEQUALINIUM CHLORIDE
     Indication: PROPHYLAXIS
     Dosage: 6X/DAY
     Route: 048
     Dates: start: 20150122
  6. PALBOCICLIB [Suspect]
     Active Substance: PALBOCICLIB
     Dosage: 100 MG, CYCLIC (1X/DAY)
     Route: 048
     Dates: start: 20150213, end: 20150305
  7. AMLODIPINE [Concomitant]
     Active Substance: AMLODIPINE BESYLATE
     Indication: HYPERTENSION
     Dosage: 1X/DAY
     Route: 048
  8. ALOSENN [Concomitant]
     Indication: CONSTIPATION
     Dosage: 1X/DAY
     Route: 048
     Dates: start: 20141117
  9. PALBOCICLIB [Suspect]
     Active Substance: PALBOCICLIB
     Indication: BREAST CANCER
     Dosage: 125 MG, CYCLIC (1X/DAY)
     Route: 048
     Dates: start: 20141211, end: 20150128
  10. PALBOCICLIB [Suspect]
     Active Substance: PALBOCICLIB
     Dosage: 100 MG, CYCLIC (1X/DAY)
     Route: 048
     Dates: start: 20150326, end: 20150415
  11. FEMARA [Concomitant]
     Active Substance: LETROZOLE
     Indication: BREAST CANCER
     Dosage: 2.5 MG, 1X/DAY
     Route: 048
     Dates: start: 20141211
  12. HIRUDOID [Concomitant]
     Active Substance: GLYCOSAMINOGLYCANS
     Indication: SKIN FISSURES
     Dosage: 2X/DAY
     Route: 003
     Dates: start: 20150108
  13. DEPAS [Concomitant]
     Indication: INSOMNIA
     Dosage: 1X/DAY
     Route: 048
     Dates: start: 2013
  14. PL [Concomitant]
     Active Substance: ACETAMINOPHEN\CAFFEINE\PROMETHAZINE\SALICYLAMIDE
     Indication: NASOPHARYNGITIS
     Dosage: 3X/DAY
     Dates: start: 20150224, end: 20150308

REACTIONS (4)
  - Vomiting [Recovered/Resolved]
  - Subarachnoid haemorrhage [Fatal]
  - Malaise [Recovered/Resolved]
  - Dizziness [Recovered/Resolved]

NARRATIVE: CASE EVENT DATE: 20150312
